FAERS Safety Report 14398405 (Version 2)
Quarter: 2018Q1

REPORT INFORMATION
  Report Type: Report from Study
  Country: None (occurrence: US)
  Receive Date: 20180116
  Receipt Date: 20180119
  Transmission Date: 20180509
  Serious: Yes (Other)
  Sender: FDA-Public Use
  Company Number: US-ABBVIE-17K-163-2134163-00

PATIENT
  Age: 66 Year
  Sex: Female
  Weight: 83.99 kg

DRUGS (3)
  1. HUMIRA [Suspect]
     Active Substance: ADALIMUMAB
     Indication: PSORIASIS
     Route: 058
     Dates: start: 20170614, end: 201709
  2. HUMIRA [Suspect]
     Active Substance: ADALIMUMAB
     Indication: PSORIATIC ARTHROPATHY
     Route: 058
     Dates: start: 201711
  3. LISINOPRIL. [Concomitant]
     Active Substance: LISINOPRIL
     Indication: HYPERTENSION

REACTIONS (3)
  - Post procedural swelling [Not Recovered/Not Resolved]
  - Cataract [Recovering/Resolving]
  - Excessive skin [Recovered/Resolved]

NARRATIVE: CASE EVENT DATE: 2017
